FAERS Safety Report 4521074-3 (Version None)
Quarter: 2004Q4

REPORT INFORMATION
  Report Type: 
  Country: None (occurrence: None)
  Receive Date: 20041203
  Receipt Date: 20041117
  Transmission Date: 20050328
  Serious: Yes (Hospitalization)
  Sender: FDA-Public Use
  Company Number: HQWYE490717NOV04

PATIENT
  Age: 82 Year
  Sex: Female

DRUGS (5)
  1. RHEUMATREX [Suspect]
     Indication: RHEUMATOID ARTHRITIS
     Dosage: SEE IMAGE
     Route: 048
     Dates: start: 20041116
  2. MINOCYCLINE HCL [Suspect]
     Indication: RHEUMATOID ARTHRITIS
     Dosage: 200 MG 1X PER 1 DAY ORAL
     Route: 048
     Dates: start: 20030101
  3. VOLTAREN [Concomitant]
  4. BONALON (ALENDRONATE SODIUM) [Concomitant]
  5. VOLTAREN [Concomitant]

REACTIONS (4)
  - BONE MARROW DEPRESSION [None]
  - PLEURAL EFFUSION [None]
  - SEPTIC SHOCK [None]
  - STOMATITIS [None]
